FAERS Safety Report 10997388 (Version 1)
Quarter: 2015Q1

REPORT INFORMATION
  Report Type: Spontaneous
  Country: US (occurrence: None)
  Receive Date: 20150331
  Receipt Date: 20150331
  Transmission Date: 20150721
  Serious: Yes (Hospitalization)
  Sender: FDA-Public Use
  Company Number: PHEH2014US022929

PATIENT
  Age: 89 Year
  Sex: Male

DRUGS (10)
  1. LEVAQUIN [Concomitant]
     Active Substance: LEVOFLOXACIN
  2. ASPIRIN (ACETYLSALICYLIC ACID) [Concomitant]
     Active Substance: ASPIRIN
  3. HUMALIN (INSULIN) [Concomitant]
     Active Substance: INSULIN NOS
  4. DIGOXIN (DIGOXIN) [Concomitant]
     Active Substance: DIGOXIN
  5. ELIQUIS [Concomitant]
     Active Substance: APIXABAN
  6. FLOMAX RELIEF (TAMSULOSIN HYDROCHLORIDE) [Concomitant]
  7. LASIX [Concomitant]
     Active Substance: FUROSEMIDE
  8. EXELON PATCH [Suspect]
     Active Substance: RIVASTIGMINE
     Indication: DEMENTIA ALZHEIMER^S TYPE
     Dosage: 4.6 MG, UNK{ TRANSDERMAL
     Route: 062
     Dates: start: 201402
  9. SIMVASTATIN (SIMVASTATIN) [Concomitant]
     Active Substance: SIMVASTATIN
  10. FINASTERIDE (FINASTERIDE) [Concomitant]
     Active Substance: FINASTERIDE

REACTIONS (4)
  - Scratch [None]
  - Application site erythema [None]
  - Application site erosion [None]
  - Urinary tract infection [None]

NARRATIVE: CASE EVENT DATE: 20141031
